FAERS Safety Report 20604277 (Version 1)
Quarter: 2022Q1

REPORT INFORMATION
  Report Type: Spontaneous
  Country: US (occurrence: None)
  Receive Date: 20220316
  Receipt Date: 20220316
  Transmission Date: 20220424
  Serious: No
  Sender: FDA-Public Use
  Company Number: None

PATIENT
  Sex: Female
  Weight: 83.46 kg

DRUGS (20)
  1. BOSULIF [Suspect]
     Active Substance: BOSUTINIB MONOHYDRATE
     Indication: Chronic myeloid leukaemia
     Dosage: FREQUENCY : DAILY;?
     Route: 048
  2. Aspirin Low Dose [Concomitant]
  3. ATORVASTATIN CALCIUM [Concomitant]
  4. BIOTIN [Concomitant]
  5. BISOPROLOL FUMARATE [Concomitant]
  6. CHOLECALCIFEROL [Concomitant]
     Active Substance: CHOLECALCIFEROL
  7. CLOPIDOGREL BISULFATE [Concomitant]
  8. OLMESARTAN MEDOXOMIL [Concomitant]
  9. Oxybutynin Chloride ER [Concomitant]
  10. PANTOPRAZOLE SODIUM [Concomitant]
  11. Diltaizem CD [Concomitant]
  12. GABAPENTIN [Concomitant]
  13. DOCUSATE SODIUM [Concomitant]
  14. METFORMIN [Concomitant]
  15. TASIGNA [Concomitant]
  16. Nitrofurantoin Macrocrystal [Concomitant]
  17. COENZYME Q10 [Concomitant]
     Active Substance: DIETARY SUPPLEMENT\UBIDECARENONE
  18. MYRBETRIQ [Concomitant]
  19. Collagen Ultra [Concomitant]
  20. ELIQUIS [Concomitant]

REACTIONS (1)
  - Nausea [None]
